FAERS Safety Report 16031461 (Version 1)
Quarter: 2019Q1

REPORT INFORMATION
  Report Type: Spontaneous
  Country: JP (occurrence: JP)
  Receive Date: 20190304
  Receipt Date: 20190304
  Transmission Date: 20190418
  Serious: Yes (Death)
  Sender: FDA-Public Use
  Company Number: JP-PFIZER INC-2019031861

PATIENT
  Age: 6 Decade
  Sex: Male

DRUGS (4)
  1. BESPONSA [Suspect]
     Active Substance: INOTUZUMAB OZOGAMICIN
     Dosage: 0.5 MG/M2, DAILY
     Route: 041
     Dates: start: 20190115, end: 20190125
  2. METHOTREXATE. [Suspect]
     Active Substance: METHOTREXATE
     Indication: ACUTE LYMPHOCYTIC LEUKAEMIA
     Dosage: UNK
     Route: 041
     Dates: start: 201901
  3. BESPONSA [Suspect]
     Active Substance: INOTUZUMAB OZOGAMICIN
     Indication: ACUTE LYMPHOCYTIC LEUKAEMIA RECURRENT
     Dosage: 0.8 MG/M2, DAILY
     Route: 041
     Dates: start: 20190108, end: 20190108
  4. METHOTREXATE. [Suspect]
     Active Substance: METHOTREXATE
     Indication: METASTATIC NERVOUS SYSTEM NEOPLASM

REACTIONS (4)
  - Full blood count decreased [Not Recovered/Not Resolved]
  - General physical health deterioration [Fatal]
  - Pyrexia [Recovered/Resolved]
  - Monoblast count decreased [Unknown]

NARRATIVE: CASE EVENT DATE: 201901
